FAERS Safety Report 6223338-4 (Version None)
Quarter: 2009Q2

REPORT INFORMATION
  Report Type: 
  Country: None (occurrence: None)
  Receive Date: 20090609
  Receipt Date: 20090527
  Transmission Date: 20091009
  Serious: Yes (Death, Hospitalization)
  Sender: FDA-Public Use
  Company Number: 2009-01711

PATIENT
  Age: 82 Year
  Sex: Male
  Weight: 50 kg

DRUGS (5)
  1. VELCADE [Suspect]
     Indication: MULTIPLE MYELOMA
     Dosage: 1.3 MG/M2, UNK, INTRAVENOUS
     Route: 042
     Dates: start: 20090130, end: 20090220
  2. THALIDOMIDE [Suspect]
     Indication: MULTIPLE MYELOMA
     Dosage: 50 UG, UNK, ORAL
     Route: 048
     Dates: start: 20080630, end: 20090223
  3. MELPHALAN(MELPHALAN) TABLET [Suspect]
     Indication: MULTIPLE MYELOMA
     Dosage: ORAL
     Route: 048
     Dates: start: 20090130, end: 20090202
  4. PREDNISONE [Suspect]
     Indication: MULTIPLE MYELOMA
     Dosage: 60 MG, UNK, ORAL
     Route: 048
     Dates: start: 20090130, end: 20090202
  5. WARFARIN SODIUM [Concomitant]

REACTIONS (5)
  - APHASIA [None]
  - CONFUSIONAL STATE [None]
  - GASTROINTESTINAL HAEMORRHAGE [None]
  - ISCHAEMIC STROKE [None]
  - NORMOCHROMIC NORMOCYTIC ANAEMIA [None]
